FAERS Safety Report 14717512 (Version 2)
Quarter: 2019Q2

REPORT INFORMATION
  Report Type: Spontaneous
  Country: US (occurrence: US)
  Receive Date: 20180404
  Receipt Date: 20190531
  Transmission Date: 20190711
  Serious: No
  Sender: FDA-Public Use
  Company Number: US-SA-2018SA007642

PATIENT
  Age: 40 Year
  Sex: Male
  Weight: 88.45 kg

DRUGS (2)
  1. ELIDEL [Concomitant]
     Active Substance: PIMECROLIMUS
     Dosage: UNK UNK,UNK
     Route: 065
  2. DUPIXENT [Suspect]
     Active Substance: DUPILUMAB
     Indication: DERMATITIS ATOPIC
     Dosage: 300 MG,QOW
     Route: 058
     Dates: start: 20170901

REACTIONS (3)
  - Dyspepsia [Unknown]
  - Erythema [Recovered/Resolved]
  - Swelling face [Recovered/Resolved]
